FAERS Safety Report 7000887-2 (Version None)
Quarter: 2010Q3

REPORT INFORMATION
  Report Type: 
  Country: None (occurrence: None)
  Receive Date: 20100902
  Receipt Date: 20100604
  Transmission Date: 20110219
  Serious: Yes (Other)
  Sender: FDA-Public Use
  Company Number: 214026USA

PATIENT
  Sex: Female

DRUGS (1)
  1. METOCLOPRAMIDE [Suspect]
     Dosage: (10 MG), ORAL
     Route: 048

REACTIONS (8)
  - COGNITIVE DISORDER [None]
  - CONVULSION [None]
  - DELUSIONAL PERCEPTION [None]
  - HYPERHIDROSIS [None]
  - MOVEMENT DISORDER [None]
  - SPEECH DISORDER [None]
  - TARDIVE DYSKINESIA [None]
  - TONIC CLONIC MOVEMENTS [None]
